FAERS Safety Report 8119184-7 (Version None)
Quarter: 2012Q1

REPORT INFORMATION
  Report Type: 
  Country: None (occurrence: None)
  Receive Date: 20120207
  Receipt Date: 20120121
  Transmission Date: 20120608
  Serious: Yes (Hospitalization)
  Sender: FDA-Public Use
  Company Number: US-ROCHE-1024411

PATIENT
  Age: 63 Year
  Sex: Female
  Weight: 63 kg

DRUGS (8)
  1. PROZAC [Concomitant]
  2. TRAZODONE HCL [Concomitant]
  3. WARFARIN SODIUM [Concomitant]
  4. FOSBRETABULIN [Suspect]
     Indication: FALLOPIAN TUBE CANCER
     Dosage: OVER 10 MINUTES ON DAY 1
     Route: 042
     Dates: start: 20111130
  5. AVASTIN [Suspect]
     Indication: FALLOPIAN TUBE CANCER
     Dosage: 15 MG/KG IV OVER 30-90 MINUTES ON DAY 1
     Route: 042
     Dates: start: 20111130
  6. DIGOXIN [Concomitant]
  7. NEURONTIN [Concomitant]
  8. SYNTHROID [Concomitant]

REACTIONS (7)
  - FATIGUE [None]
  - LEFT VENTRICULAR DYSFUNCTION [None]
  - ATAXIA [None]
  - COGNITIVE DISORDER [None]
  - MYOCARDIAL INFARCTION [None]
  - TROPONIN I INCREASED [None]
  - ELECTROCARDIOGRAM QT PROLONGED [None]
